FAERS Safety Report 7583113-5 (Version None)
Quarter: 2011Q2

REPORT INFORMATION
  Report Type: 
  Country: None (occurrence: None)
  Receive Date: 20110630
  Receipt Date: 20110124
  Transmission Date: 20111010
  Serious: No
  Sender: FDA-Public Use
  Company Number: US-ASTRAZENECA-2011SE04160

PATIENT
  Age: 69 Year
  Sex: Male
  Weight: 87.1 kg

DRUGS (1)
  1. ZOLADEX [Suspect]
     Indication: PROSTATE CANCER
     Route: 058
     Dates: start: 20110111

REACTIONS (6)
  - CONSTIPATION [None]
  - NERVOUSNESS [None]
  - CHILLS [None]
  - HAEMATOCHEZIA [None]
  - HOT FLUSH [None]
  - ABDOMINAL DISCOMFORT [None]
